FAERS Safety Report 14688062 (Version 1)
Quarter: 2018Q1

REPORT INFORMATION
  Report Type: Spontaneous
  Country: US (occurrence: US)
  Receive Date: 20180328
  Receipt Date: 20180328
  Transmission Date: 20180509
  Serious: Yes (Other)
  Sender: FDA-Public Use
  Company Number: US-PFIZER INC-2018124844

PATIENT
  Sex: Male

DRUGS (1)
  1. SUTENT [Suspect]
     Active Substance: SUNITINIB MALATE
     Dosage: UNK, CYCLIC

REACTIONS (7)
  - Neutropenia [Unknown]
  - Diarrhoea [Unknown]
  - Eye swelling [Unknown]
  - Eye disorder [Unknown]
  - Nausea [Unknown]
  - Ocular hyperaemia [Unknown]
  - Conjunctivitis [Unknown]
